FAERS Safety Report 6739150-3 (Version None)
Quarter: 2010Q2

REPORT INFORMATION
  Report Type: 
  Country: None (occurrence: None)
  Receive Date: 20100525
  Receipt Date: 20100513
  Transmission Date: 20101027
  Serious: No
  Sender: FDA-Public Use
  Company Number: US-JNJFOC-20100505541

PATIENT
  Sex: Female
  Weight: 73.48 kg

DRUGS (3)
  1. FENTANYL CITRATE [Suspect]
     Indication: BACK PAIN
     Route: 062
     Dates: end: 20100503
  2. FENTANYL CITRATE [Suspect]
     Route: 062
     Dates: start: 20100503
  3. MANY OTHER UNSPECIFIED MEDICATIONS [Concomitant]
     Indication: MALAISE
     Route: 065

REACTIONS (2)
  - DRUG ADMINISTERED AT INAPPROPRIATE SITE [None]
  - DRUG INEFFECTIVE [None]
